FAERS Safety Report 20035934 (Version 1)
Quarter: 2021Q4

REPORT INFORMATION
  Report Type: Spontaneous
  Country: US (occurrence: US)
  Receive Date: 20211105
  Receipt Date: 20211105
  Transmission Date: 20220304
  Serious: Yes (Hospitalization)
  Sender: FDA-Public Use
  Company Number: US-JNJFOC-20211054951

PATIENT
  Age: 29 Year
  Sex: Male
  Weight: 74 kg

DRUGS (6)
  1. TYLENOL EXTRA STRENGTH [Suspect]
     Active Substance: ACETAMINOPHEN
     Indication: Pain
     Dosage: 1-1.5 GRAMS EVERY 3-4 HOURS (6000-9000 MG OF ACETAMINOPHEN)FOR 3 DAYS
     Route: 048
     Dates: end: 20020206
  2. TYLENOL EXTRA STRENGTH [Suspect]
     Active Substance: ACETAMINOPHEN
     Indication: Tremor
  3. TYLENOL EXTRA STRENGTH [Suspect]
     Active Substance: ACETAMINOPHEN
     Indication: Malaise
  4. VENTOLIN [Concomitant]
     Active Substance: ALBUTEROL SULFATE
     Indication: Product used for unknown indication
     Dosage: 2 PUFFS EVERY 4 HOURS
     Route: 065
     Dates: end: 20020206
  5. COCAINE [Concomitant]
     Active Substance: COCAINE
     Indication: Product used for unknown indication
     Route: 065
     Dates: end: 20020130
  6. UNSPECIFIED INGREDIENT [Concomitant]
     Active Substance: UNSPECIFIED INGREDIENT
     Indication: Product used for unknown indication
     Dosage: FOR 2 MONTHS
     Route: 065
     Dates: end: 20020116

REACTIONS (3)
  - Acute hepatic failure [Recovered/Resolved]
  - Wheezing [Recovered/Resolved]
  - Accidental overdose [Recovered/Resolved]
